FAERS Safety Report 21585977 (Version 1)
Quarter: 2022Q4

REPORT INFORMATION
  Report Type: Report from Study
  Country: GR (occurrence: GR)
  Receive Date: 20221111
  Receipt Date: 20221111
  Transmission Date: 20230113
  Serious: No
  Sender: FDA-Public Use
  Company Number: GR-TAKEDA-2022TUS083679

PATIENT
  Age: 53 Year
  Sex: Female

DRUGS (8)
  1. PARATHYROID HORMONE [Suspect]
     Active Substance: PARATHYROID HORMONE
     Indication: Autoimmune hypothyroidism
     Dosage: 50 MILLIGRAM, QD
     Route: 050
  2. PARATHYROID HORMONE [Suspect]
     Active Substance: PARATHYROID HORMONE
     Indication: Autoimmune hypothyroidism
     Dosage: 50 MILLIGRAM, QD
     Route: 050
  3. PARATHYROID HORMONE [Suspect]
     Active Substance: PARATHYROID HORMONE
     Indication: Autoimmune hypothyroidism
     Dosage: 50 MILLIGRAM, QD
     Route: 050
  4. VITOCALCIT [Concomitant]
     Indication: Calcium deficiency
     Dosage: 10 GTT DROPS, QD
  5. JAVIPREN [Concomitant]
     Indication: Blood cholesterol
     Dosage: 1 DOSAGE FORM, QD
  6. TYROSINE [Concomitant]
     Active Substance: TYROSINE
     Indication: Thyroidectomy
     Dosage: 88 MILLIGRAM, 4/WEEK
     Route: 065
  7. TYROSINE [Concomitant]
     Active Substance: TYROSINE
     Dosage: 100 MILLIGRAM, 3/WEEK
     Route: 065
  8. VITAMIN D [Concomitant]
     Active Substance: VITAMIN D NOS
     Indication: Vitamin D deficiency

REACTIONS (4)
  - Malaise [Not Recovered/Not Resolved]
  - Bone pain [Not Recovered/Not Resolved]
  - Blood calcium increased [Not Recovered/Not Resolved]
  - Headache [Not Recovered/Not Resolved]
